FAERS Safety Report 9040969 (Version 1)
Quarter: 2013Q1

REPORT INFORMATION
  Report Type: Spontaneous
  Country: US (occurrence: None)
  Receive Date: 20130123
  Receipt Date: 20130123
  Transmission Date: 20140127
  Serious: Yes (Life-Threatening, Hospitalization)
  Sender: FDA-Public Use
  Company Number: None

PATIENT
  Age: 89 Year
  Sex: Female

DRUGS (1)
  1. RECLAST 5 MG/100ML [Suspect]
     Indication: OSTEOPOROSIS
     Dosage: INFUSION  ONCE
     Dates: start: 20121114

REACTIONS (3)
  - Confusional state [None]
  - Dehydration [None]
  - Renal failure acute [None]
